FAERS Safety Report 5086607-X (Version None)
Quarter: 2006Q3

REPORT INFORMATION
  Report Type: 
  Country: None (occurrence: None)
  Receive Date: 20060703
  Receipt Date: 20050919
  Transmission Date: 20061208
  Serious: No
  Sender: FDA-Public Use
  Company Number: 2005S1009210

PATIENT
  Age: 28 Year
  Sex: Female
  Weight: 68.9467 kg

DRUGS (6)
  1. CLOZAPINE [Suspect]
     Indication: SCHIZOPHRENIA, UNDIFFERENTIATED TYPE
     Dosage: SEE IMAGE
     Route: 048
  2. CARBAMAZEPINE [Concomitant]
  3. TEGASEROD [Concomitant]
  4. ENALAPRIL [Concomitant]
  5. DOCUSATE SODIUM [Concomitant]
  6. ETHINYLESTRADIOL/LEVONORGESTREL [Concomitant]

REACTIONS (1)
  - GRANULOCYTOPENIA [None]
